FAERS Safety Report 6159987-1 (Version None)
Quarter: 2009Q2

REPORT INFORMATION
  Report Type: 
  Country: None (occurrence: None)
  Receive Date: 20090416
  Receipt Date: 20090410
  Transmission Date: 20091009
  Serious: Yes (Death)
  Sender: FDA-Public Use
  Company Number: 190213USA

PATIENT
  Age: 52 Year
  Sex: Male
  Weight: 137.4399 kg

DRUGS (10)
  1. METHOTREXATE TABLET 2.5 MG (METHEOTREXATE) [Suspect]
     Dosage: 3 TABS WEEKLY (2.5 MG, 1 IN 1 WK)
  2. HYDROXYZINE HCL TABLET 50MG (HYDROXYZINE) [Suspect]
     Indication: RHEUMATOID ARTHRITIS
     Dosage: 1 TAB QID (50 MG) ORAL
     Route: 048
  3. OPANA ER [Suspect]
     Indication: MYALGIA
     Dosage: 1 TAB Q12H (30 MG, 1 IN 12 HR) ORAL
     Route: 048
  4. OPANA ER [Suspect]
     Indication: RHEUMATOID ARTHRITIS
     Dosage: 1 TAB Q12H (30 MG, 1 IN 12 HR) ORAL
     Route: 048
  5. FLUOXETINE [Suspect]
     Indication: DEPRESSION
     Dosage: 40 MG, 1 DAILY, ORAL
     Route: 048
     Dates: start: 20071008, end: 20090201
  6. LISINOPRIL AND HYDROCHLOROTHIAZIDE [Suspect]
     Indication: HYPERTENSION
     Dosage: 1 TAB DAILY, ORAL
     Route: 048
     Dates: start: 20080404, end: 20090201
  7. NABUMETONE [Suspect]
     Indication: ARTHRITIS
     Dosage: 750 MG, 1 TAB, BID ORAL
     Route: 048
     Dates: start: 20070619, end: 20090201
  8. LORATADINE [Suspect]
     Indication: RHINITIS ALLERGIC
     Dosage: 1 TAB DAILY (10 MG) ORAL
     Route: 048
     Dates: start: 20081031, end: 20090201
  9. ANDRODERM [Suspect]
     Indication: HYPOGONADISM
     Dosage: 1 PATCH DAILY (5 MG) TRANSDERMAL
     Route: 062
     Dates: start: 20080609, end: 20090201
  10. FOLIC ACID [Suspect]
     Dosage: 1 DAILY (1 MG) ORAL
     Route: 048
     Dates: start: 20070417, end: 20090201

REACTIONS (2)
  - PAIN [None]
  - UNRESPONSIVE TO STIMULI [None]
